FAERS Safety Report 6968837-2 (Version None)
Quarter: 2010Q3

REPORT INFORMATION
  Report Type: 
  Country: None (occurrence: None)
  Receive Date: 20100907
  Receipt Date: 20100804
  Transmission Date: 20110219
  Serious: No
  Sender: FDA-Public Use
  Company Number: US-BAYER-201029903NA

PATIENT
  Age: 58 Year
  Sex: Female

DRUGS (1)
  1. EOVIST [Suspect]
     Indication: NUCLEAR MAGNETIC RESONANCE IMAGING
     Dosage: TOTAL DAILY DOSE: 10 ML
     Dates: start: 20100804, end: 20100804

REACTIONS (4)
  - DYSPNOEA [None]
  - PARAESTHESIA ORAL [None]
  - PRURITUS [None]
  - URTICARIA [None]
